FAERS Safety Report 7939425-6 (Version None)
Quarter: 2011Q4

REPORT INFORMATION
  Report Type: 
  Country: None (occurrence: None)
  Receive Date: 20111125
  Receipt Date: 20111116
  Transmission Date: 20120403
  Serious: Yes (Other)
  Sender: FDA-Public Use
  Company Number: CA-BAYER-2011-110796

PATIENT
  Age: 25 Year
  Sex: Female

DRUGS (2)
  1. YAZ [Suspect]
     Indication: PRODUCT USED FOR UNKNOWN INDICATION
     Dosage: UNK
     Route: 048
     Dates: start: 20111017
  2. LEVONORGESTREL [Concomitant]
     Indication: POST COITAL CONTRACEPTION
     Dosage: UNK
     Dates: start: 20111101

REACTIONS (2)
  - HYPOMENORRHOEA [None]
  - POST ABORTION HAEMORRHAGE [None]
